FAERS Safety Report 9530861 (Version 1)
Quarter: 2013Q1

REPORT INFORMATION
  Report Type: Spontaneous
  Country: US (occurrence: None)
  Receive Date: 20130315
  Receipt Date: 20130315
  Transmission Date: 20140127
  Serious: Yes (Other)
  Sender: FDA-Public Use
  Company Number: US-JNJFOC-20120601237

PATIENT
  Age: 34 Year
  Sex: Male
  Weight: 122.02 kg

DRUGS (4)
  1. IBUPROFEN (IBUPROFEN) UNSPECIFIED [Suspect]
     Indication: PRODUCT USED FOR UNKNOWN INDICATION
  2. ALEVE (NAPROXEN SODIUM) UNSPECIFIED [Suspect]
     Indication: PRODUCT USED FOR UNKNOWN INDICATION
  3. DURAGESIC (FENTANYL) [Concomitant]
  4. PROZAC (FLUOXETINE HYDROCHLORIDE) [Concomitant]

REACTIONS (1)
  - Gastrointestinal haemorrhage [None]
